FAERS Safety Report 9034742 (Version 2)
Quarter: 2013Q1

REPORT INFORMATION
  Report Type: Spontaneous
  Country: IT (occurrence: None)
  Receive Date: 20130111
  Receipt Date: 20130311
  Transmission Date: 20140127
  Serious: Yes (Hospitalization)
  Sender: FDA-Public Use
  Company Number: 2012AP004465

PATIENT
  Age: 70 Year
  Sex: Female

DRUGS (7)
  1. LOSARTAN POTASSIUM (LOSARTAN POTASSIUM) [Suspect]
     Indication: HYPERTENSION
     Route: 048
     Dates: start: 20000101, end: 20121127
  2. FUROSEMIDE (FUROSEMIDE) [Suspect]
     Indication: HYPERTENSION
     Route: 048
     Dates: start: 20000101, end: 20121127
  3. SPIRONOLACTONE (SPIRONOLACTONE) [Suspect]
     Indication: HYPERTENSION
     Dates: start: 20000101, end: 20121127
  4. CARDIOASPIRIN (ACETYLSALICYLIC ACID) [Concomitant]
  5. ALLOPURINOL [Concomitant]
  6. SIMVASTATIN (SIMVASTATIN) [Concomitant]
  7. PREGABALIN (PREGABALIN) [Concomitant]

REACTIONS (4)
  - Nodal arrhythmia [None]
  - Hyperkalaemia [None]
  - Presyncope [None]
  - Electrocardiogram T wave abnormal [None]
